FAERS Safety Report 13046717 (Version 3)
Quarter: 2018Q2

REPORT INFORMATION
  Report Type: Spontaneous
  Country: US (occurrence: US)
  Receive Date: 20161220
  Receipt Date: 20180430
  Transmission Date: 20180711
  Serious: Yes (Hospitalization, Other)
  Sender: FDA-Public Use
  Company Number: US-PFIZER INC-2016582029

PATIENT
  Age: 75 Year
  Sex: Male

DRUGS (2)
  1. SUTENT [Suspect]
     Active Substance: SUNITINIB MALATE
     Dosage: UNK
     Dates: start: 20090522, end: 20170124
  2. SUTENT [Suspect]
     Active Substance: SUNITINIB MALATE
     Indication: RENAL CELL CARCINOMA
     Dosage: 37.5 MG, CYCLIC (DAILY FOR 28 DAYS THEN OFF FOR 2 WEEKS)
     Dates: start: 200906, end: 201609

REACTIONS (8)
  - Cardiac failure congestive [Unknown]
  - Haemoglobin decreased [Recovering/Resolving]
  - Anaemia [Unknown]
  - Neutropenia [Recovering/Resolving]
  - Myocardial necrosis marker increased [Recovered/Resolved]
  - Renal failure [Recovering/Resolving]
  - Chronic kidney disease [Unknown]
  - Diarrhoea [Unknown]

NARRATIVE: CASE EVENT DATE: 201606
